FAERS Safety Report 6665867-5 (Version None)
Quarter: 2010Q2

REPORT INFORMATION
  Report Type: 
  Country: None (occurrence: None)
  Receive Date: 20100402
  Receipt Date: 20100326
  Transmission Date: 20101027
  Serious: Yes (Other)
  Sender: FDA-Public Use
  Company Number: IE-ROCHE-684731

PATIENT
  Age: 62 Year
  Sex: Female

DRUGS (2)
  1. BONIVA [Suspect]
     Indication: OSTEOPOROSIS
     Route: 048
     Dates: start: 20070501, end: 20100201
  2. CALCICHEW D3 FORTE [Concomitant]
     Route: 048

REACTIONS (3)
  - DIARRHOEA [None]
  - HAEMATEMESIS [None]
  - VOMITING [None]
